FAERS Safety Report 5115789-6 (Version None)
Quarter: 2006Q3

REPORT INFORMATION
  Report Type: 
  Country: None (occurrence: None)
  Receive Date: 20060925
  Receipt Date: 20060913
  Transmission Date: 20061208
  Serious: Yes (Other)
  Sender: FDA-Public Use
  Company Number: 229873

PATIENT
  Age: 84 Year
  Sex: Female
  Weight: 70.3 kg

DRUGS (1)
  1. AVASTIN [Suspect]
     Indication: MACULAR DEGENERATION
     Dosage: INTRAVITREAL

REACTIONS (3)
  - EYE INJURY [None]
  - EYE SWELLING [None]
  - RASH ERYTHEMATOUS [None]
